FAERS Safety Report 23124434 (Version 2)
Quarter: 2023Q4

REPORT INFORMATION
  Report Type: Spontaneous
  Country: US (occurrence: US)
  Receive Date: 20231030
  Receipt Date: 20231103
  Transmission Date: 20240109
  Serious: No
  Sender: FDA-Public Use
  Company Number: US-AMX-005591

PATIENT
  Age: 62 Year
  Sex: Female

DRUGS (3)
  1. RELYVRIO [Suspect]
     Active Substance: SODIUM PHENYLBUTYRATE\TAURURSODIOL
     Indication: Amyotrophic lateral sclerosis
     Dosage: 1 SACHET ONCE DAILY FOR 3 WEEKS, THEN 1 SACHET TWICE DAILY
     Route: 048
     Dates: start: 202309
  2. RADICAVA [Suspect]
     Active Substance: EDARAVONE
     Indication: Product used for unknown indication
  3. RADICAVA [Suspect]
     Active Substance: EDARAVONE
     Indication: Product used for unknown indication
     Dosage: 5 ML BY MOUTH OR FEEDING TUBE 1 TIME A DAY FOR 10 OUT OF 14 DAYS THAN 14 DAYS OFF
     Route: 048

REACTIONS (4)
  - Lip swelling [Unknown]
  - Asthenia [Not Recovered/Not Resolved]
  - Fatigue [Not Recovered/Not Resolved]
  - Product use complaint [Unknown]
